FAERS Safety Report 17921088 (Version 2)
Quarter: 2021Q2

REPORT INFORMATION
  Report Type: Report from Study
  Country: US (occurrence: US)
  Receive Date: 20200622
  Receipt Date: 20210504
  Transmission Date: 20210717
  Serious: Yes (Hospitalization, Other)
  Sender: FDA-Public Use
  Company Number: US-ROCHE-2624149

PATIENT
  Age: 79 Year
  Sex: Male

DRUGS (24)
  1. BENADRYL [Concomitant]
     Active Substance: DIPHENHYDRAMINE HYDROCHLORIDE
  2. SYMBICORT [Concomitant]
     Active Substance: BUDESONIDE\FORMOTEROL FUMARATE DIHYDRATE
     Dosage: 160?4.5 MCG/ACTUATION INHALER?INHALE 2 PUFFS BY MOUTH TWICE DAILY.
  3. TYLENOL PM [Concomitant]
     Active Substance: ACETAMINOPHEN\DIPHENHYDRAMINE
     Dosage: 25?500 MG TABLET
  4. ZOFRAN [Concomitant]
     Active Substance: ONDANSETRON HYDROCHLORIDE
     Indication: NAUSEA
     Dosage: TAKE 1 TABLET (8 MG) BY MOUTH EVERY 8 (EIGHT) HOURS AS NEEDED
  5. ATEZOLIZUMAB. [Suspect]
     Active Substance: ATEZOLIZUMAB
     Indication: SQUAMOUS CELL CARCINOMA OF SKIN
     Route: 041
     Dates: start: 20191216
  6. NORVASC [Concomitant]
     Active Substance: AMLODIPINE BESYLATE
  7. AMARYL [Concomitant]
     Active Substance: GLIMEPIRIDE
  8. DILAUDID [Concomitant]
     Active Substance: HYDROMORPHONE HYDROCHLORIDE
     Indication: PAIN
     Dosage: TAKE 1?2 TABLETS (2?4 MG) BY MOUTH EVERY 4 (FOUR) HOURS AS NEEDED
  9. TENORMIN [Concomitant]
     Active Substance: ATENOLOL
  10. CELEXA [Concomitant]
     Active Substance: CITALOPRAM HYDROBROMIDE
  11. SYNTHROID [Concomitant]
     Active Substance: LEVOTHYROXINE SODIUM
     Dosage: 88 MCG
  12. STIOLTO RESPIMAT [Concomitant]
     Active Substance: OLODATEROL HYDROCHLORIDE\TIOTROPIUM BROMIDE MONOHYDRATE
     Dosage: 2.5?2.5 MCG/ACTUATION MIST INHALE 1 SPRAY BY MOUTH DAILY.
  13. TYLENOL [Concomitant]
     Active Substance: ACETAMINOPHEN
  14. PROVENTIL [Concomitant]
     Active Substance: ALBUTEROL
     Dosage: 2 MG/5 ML SYRUP. ?TAKE 2 MG BY MOUTH EVERY 6 (SIX) HOURS AS NEEDED.
  15. PRINIVIL [Concomitant]
     Active Substance: LISINOPRIL
  16. LYRICA [Concomitant]
     Active Substance: PREGABALIN
  17. FLOMAX [Concomitant]
     Active Substance: TAMSULOSIN HYDROCHLORIDE
     Dosage: 0.4 MG 24 HR CAPSULE?TAKE 0.4 MG BY MOUTH DAILY.
  18. COBIMETINIB. [Suspect]
     Active Substance: COBIMETINIB
     Indication: SQUAMOUS CELL CARCINOMA OF SKIN
     Dosage: 20 MG TABLET 3 TIMES A DAY
     Route: 048
  19. CEFTRIAXONE. [Concomitant]
     Active Substance: CEFTRIAXONE
  20. ZOFRAN [Concomitant]
     Active Substance: ONDANSETRON HYDROCHLORIDE
     Indication: VOMITING
  21. SPIRIVA RESPIMAT [Concomitant]
     Active Substance: TIOTROPIUM BROMIDE
     Dosage: 2.5 MCG/ACTUATION MIST INHALE 1 SPRAY BY MOUTH DAILY.
  22. SOLU?MEDROL [Concomitant]
     Active Substance: METHYLPREDNISOLONE SODIUM SUCCINATE
  23. GLUCOPHAGE [Concomitant]
     Active Substance: METFORMIN HYDROCHLORIDE
  24. PRAVACHOL [Concomitant]
     Active Substance: PRAVASTATIN SODIUM
     Dosage: TAKE 1.5 TABLETS BY MOUTH DAILY.

REACTIONS (4)
  - Dyspnoea [Recovered/Resolved]
  - Syncope [Recovered/Resolved]
  - Cyanosis [Recovered/Resolved]
  - Wound haemorrhage [Unknown]

NARRATIVE: CASE EVENT DATE: 20191216
